FAERS Safety Report 25435747 (Version 1)
Quarter: 2025Q2

REPORT INFORMATION
  Report Type: Other
  Country: CN (occurrence: CN)
  Receive Date: 20250613
  Receipt Date: 20250613
  Transmission Date: 20250716
  Serious: Yes (Life-Threatening, Hospitalization)
  Sender: EMD SERONO INC
  Company Number: CN-Merck Healthcare KGaA-2025028435

PATIENT
  Age: 69 Year
  Sex: Female

DRUGS (2)
  1. LEVOTHYROXINE [Suspect]
     Active Substance: LEVOTHYROXINE
     Indication: Primary hypothyroidism
  2. INSULIN NOS [Concomitant]
     Active Substance: INSULIN NOS
     Indication: Type 1 diabetes mellitus

REACTIONS (7)
  - Hypovolaemic shock [Recovered/Resolved]
  - Cardiac failure acute [Recovered/Resolved]
  - Adrenocortical insufficiency acute [Recovered/Resolved]
  - Polyglandular autoimmune syndrome type II [Recovered/Resolved]
  - Hypochloraemia [Recovered/Resolved]
  - Hyponatraemia [Recovered/Resolved]
  - Diabetic ketoacidosis [Recovered/Resolved]
